FAERS Safety Report 5201399-9 (Version None)
Quarter: 2007Q1

REPORT INFORMATION
  Report Type: 
  Country: None (occurrence: None)
  Receive Date: 20070108
  Receipt Date: 20061227
  Transmission Date: 20070707
  Serious: Yes (Other)
  Sender: FDA-Public Use
  Company Number: JP-PFIZER INC-2006131400

PATIENT
  Sex: Male
  Weight: 89 kg

DRUGS (1)
  1. VIAGRA [Suspect]
     Indication: ERECTILE DYSFUNCTION
     Dosage: DAILY DOSE:50MG
     Route: 048
     Dates: start: 20000101, end: 20060101

REACTIONS (4)
  - GLAUCOMA [None]
  - HEADACHE [None]
  - RETINAL DISORDER [None]
  - VISUAL ACUITY REDUCED [None]
